FAERS Safety Report 4979945-X (Version None)
Quarter: 2006Q2

REPORT INFORMATION
  Report Type: 
  Country: None (occurrence: None)
  Receive Date: 20060421
  Receipt Date: 20050630
  Transmission Date: 20061013
  Serious: Yes (Death)
  Sender: FDA-Public Use
  Company Number: US-MERCK-0507USA00177

PATIENT
  Sex: Male

DRUGS (2)
  1. VIOXX [Suspect]
     Indication: PAIN
     Route: 048
     Dates: start: 20040621, end: 20040627
  2. BEXTRA [Concomitant]
     Route: 048
     Dates: start: 20020726, end: 20040621

REACTIONS (1)
  - CEREBROVASCULAR ACCIDENT [None]
